FAERS Safety Report 7170985-1 (Version None)
Quarter: 2010Q4

REPORT INFORMATION
  Report Type: 
  Country: None (occurrence: None)
  Receive Date: 20101217
  Receipt Date: 20101209
  Transmission Date: 20110411
  Serious: Yes (Other)
  Sender: FDA-Public Use
  Company Number: US-MERCK-1009USA04142

PATIENT
  Age: 60 Year
  Sex: Female

DRUGS (3)
  1. FOSAMAX [Suspect]
     Indication: OSTEOPENIA
     Route: 048
     Dates: start: 20050201, end: 20070301
  2. [THERAPY UNSPECIFIED] [Concomitant]
     Indication: HYPERTENSION
     Route: 065
     Dates: start: 19780101
  3. [THERAPY UNSPECIFIED] [Concomitant]
     Indication: BLOOD CHOLESTEROL INCREASED
     Route: 065
     Dates: start: 20030101

REACTIONS (14)
  - ADVERSE DRUG REACTION [None]
  - AGEUSIA [None]
  - BONE DENSITY DECREASED [None]
  - DIARRHOEA [None]
  - EDENTULOUS [None]
  - HYPERPHAGIA [None]
  - HYPOAESTHESIA FACIAL [None]
  - INFECTION [None]
  - JAW FRACTURE [None]
  - MASTICATION DISORDER [None]
  - MOUTH ULCERATION [None]
  - OSTEONECROSIS OF JAW [None]
  - RETCHING [None]
  - SPEECH DISORDER [None]
